FAERS Safety Report 6436953-X (Version None)
Quarter: 2009Q4

REPORT INFORMATION
  Report Type: 
  Country: None (occurrence: None)
  Receive Date: 20091112
  Receipt Date: 20091104
  Transmission Date: 20100525
  Serious: Yes (Other)
  Sender: FDA-Public Use
  Company Number: US-JNJCH-2009029214

PATIENT
  Age: 73 Year
  Sex: Female
  Weight: 54.4 kg

DRUGS (1)
  1. ZYRTEC [Suspect]
     Indication: HYPERSENSITIVITY
     Route: 048

REACTIONS (2)
  - EPISTAXIS [None]
  - WRONG DRUG ADMINISTERED [None]
